FAERS Safety Report 8512561-1 (Version None)
Quarter: 2012Q3

REPORT INFORMATION
  Report Type: 
  Country: None (occurrence: None)
  Receive Date: 20120716
  Receipt Date: 20120703
  Transmission Date: 20120928
  Serious: Yes (Hospitalization)
  Sender: FDA-Public Use
  Company Number: ZA-ROCHE-1083936

PATIENT
  Sex: Male
  Weight: 81.7 kg

DRUGS (6)
  1. HYDROCHLOROTHIAZIDE [Concomitant]
     Dates: end: 20120130
  2. INTERFERON ALFA-2A [Suspect]
     Indication: METASTATIC RENAL CELL CARCINOMA
     Dates: start: 20090518, end: 20120130
  3. LACTULOSE [Concomitant]
     Dosage: BRAND NAME: LACSON
     Dates: start: 20090505
  4. PERINDOPRIL ERBUMINE [Concomitant]
  5. LEVITRA [Concomitant]
     Dates: start: 20110617, end: 20120130
  6. AVASTIN [Suspect]
     Indication: METASTATIC RENAL CELL CARCINOMA
     Dates: start: 20090518, end: 20110602

REACTIONS (2)
  - ENTERITIS [None]
  - RENAL IMPAIRMENT [None]
